FAERS Safety Report 25656274 (Version 1)
Quarter: 2025Q3

REPORT INFORMATION
  Report Type: Spontaneous
  Country: EU (occurrence: EU)
  Receive Date: 20250807
  Receipt Date: 20250807
  Transmission Date: 20251021
  Serious: Yes (Death, Other)
  Sender: SANDOZ
  Company Number: EU-SZ09-PHHY2014DE142392

PATIENT
  Age: 33 Year
  Sex: Female

DRUGS (38)
  1. BEVACIZUMAB [Suspect]
     Active Substance: BEVACIZUMAB
     Indication: Breast cancer metastatic
     Route: 065
  2. BEVACIZUMAB [Suspect]
     Active Substance: BEVACIZUMAB
     Indication: Malignant neoplasm progression
     Route: 065
  3. BEVACIZUMAB [Suspect]
     Active Substance: BEVACIZUMAB
     Indication: Invasive ductal breast carcinoma
     Route: 065
     Dates: start: 200902, end: 200910
  4. BEVACIZUMAB [Suspect]
     Active Substance: BEVACIZUMAB
     Indication: Metastases to bone
     Route: 065
  5. BEVACIZUMAB [Suspect]
     Active Substance: BEVACIZUMAB
     Indication: Metastases to lung
     Route: 065
     Dates: start: 200912
  6. BEVACIZUMAB [Suspect]
     Active Substance: BEVACIZUMAB
     Indication: Metastases to skin
  7. CAPECITABINE [Suspect]
     Active Substance: CAPECITABINE
     Indication: Malignant neoplasm progression
     Dosage: 3000 MG, QD
     Route: 065
  8. CAPECITABINE [Suspect]
     Active Substance: CAPECITABINE
     Indication: Malignant neoplasm progression
     Dosage: CYCLES OF 3000 MG, DAILY FOR 3 WEEKS
     Route: 065
     Dates: start: 200902, end: 200910
  9. CAPECITABINE [Suspect]
     Active Substance: CAPECITABINE
     Indication: Breast cancer metastatic
     Dosage: 500 MG, BID
     Route: 065
  10. CAPECITABINE [Suspect]
     Active Substance: CAPECITABINE
     Indication: Metastases to lung
     Route: 065
  11. CAPECITABINE [Suspect]
     Active Substance: CAPECITABINE
     Indication: Metastases to skin
     Route: 065
  12. CAPECITABINE [Suspect]
     Active Substance: CAPECITABINE
     Indication: Invasive ductal breast carcinoma
  13. CARBOPLATIN [Suspect]
     Active Substance: CARBOPLATIN
     Indication: Malignant neoplasm progression
     Route: 065
     Dates: start: 200912
  14. CARBOPLATIN [Suspect]
     Active Substance: CARBOPLATIN
     Indication: Metastases to bone
     Route: 065
  15. CARBOPLATIN [Suspect]
     Active Substance: CARBOPLATIN
     Indication: Metastases to lung
     Route: 065
  16. CARBOPLATIN [Suspect]
     Active Substance: CARBOPLATIN
     Indication: Metastases to skin
     Route: 065
  17. CARBOPLATIN [Suspect]
     Active Substance: CARBOPLATIN
     Indication: Breast cancer metastatic
     Route: 065
  18. CARBOPLATIN [Suspect]
     Active Substance: CARBOPLATIN
     Indication: Invasive ductal breast carcinoma
  19. CELECOXIB [Suspect]
     Active Substance: CELECOXIB
     Indication: Breast cancer metastatic
     Dosage: 200 MG, BID
     Route: 065
  20. CELECOXIB [Suspect]
     Active Substance: CELECOXIB
     Indication: Malignant neoplasm progression
     Dosage: 400 MG, QD
     Route: 065
  21. CELECOXIB [Suspect]
     Active Substance: CELECOXIB
     Indication: Metastases to lung
     Dosage: 400 MG, QD
     Route: 065
  22. CELECOXIB [Suspect]
     Active Substance: CELECOXIB
     Indication: Malignant neoplasm progression
     Route: 065
     Dates: start: 200902
  23. CELECOXIB [Suspect]
     Active Substance: CELECOXIB
     Indication: Metastases to bone
     Route: 065
     Dates: start: 200912
  24. CELECOXIB [Suspect]
     Active Substance: CELECOXIB
     Indication: Metastases to skin
     Route: 065
  25. CELECOXIB [Suspect]
     Active Substance: CELECOXIB
     Indication: Invasive ductal breast carcinoma
  26. LAPATINIB [Suspect]
     Active Substance: LAPATINIB
     Indication: Metastases to bone
     Dosage: 2 DF, QD
     Route: 065
  27. LAPATINIB [Suspect]
     Active Substance: LAPATINIB
     Indication: Invasive ductal breast carcinoma
     Dosage: 2 X 250 MG, QD
     Route: 065
  28. LAPATINIB [Suspect]
     Active Substance: LAPATINIB
     Indication: Malignant neoplasm progression
     Route: 065
  29. LAPATINIB [Suspect]
     Active Substance: LAPATINIB
     Indication: Metastases to lung
     Route: 065
  30. LAPATINIB [Suspect]
     Active Substance: LAPATINIB
     Indication: Metastases to skin
     Route: 065
  31. PACLITAXEL [Suspect]
     Active Substance: PACLITAXEL
     Indication: Malignant neoplasm progression
     Route: 065
     Dates: start: 200912
  32. PACLITAXEL [Suspect]
     Active Substance: PACLITAXEL
     Indication: Metastases to skin
     Route: 065
  33. PACLITAXEL [Suspect]
     Active Substance: PACLITAXEL
     Indication: Metastases to skin
     Route: 065
  34. PACLITAXEL [Suspect]
     Active Substance: PACLITAXEL
     Indication: Breast cancer metastatic
  35. PACLITAXEL [Suspect]
     Active Substance: PACLITAXEL
     Indication: Invasive ductal breast carcinoma
  36. PACLITAXEL [Suspect]
     Active Substance: PACLITAXEL
     Indication: Malignant neoplasm progression
  37. PACLITAXEL [Suspect]
     Active Substance: PACLITAXEL
     Indication: Metastases to bone
  38. PACLITAXEL [Suspect]
     Active Substance: PACLITAXEL
     Indication: Metastases to lung

REACTIONS (14)
  - Metastatic malignant melanoma [Fatal]
  - Metastases to central nervous system [Fatal]
  - Metastatic malignant melanoma [Fatal]
  - Second primary malignancy [Fatal]
  - Product use in unapproved indication [Fatal]
  - Metastases to central nervous system [Unknown]
  - Nervous system disorder [Unknown]
  - Gait inability [Unknown]
  - Spinal stenosis [Unknown]
  - Malignant neoplasm progression [Unknown]
  - Breast cancer metastatic [Unknown]
  - Malignant neoplasm progression [Unknown]
  - Therapeutic product effect incomplete [Unknown]
  - Therapeutic product effect incomplete [Unknown]

NARRATIVE: CASE EVENT DATE: 20090101
